FAERS Safety Report 8759543 (Version 1)
Quarter: 2012Q4

REPORT INFORMATION
  Report Type: 
  Country: US (occurrence: US)
  Receive Date: 20120829
  Receipt Date: 20120829
  Transmission Date: 20130627
  Serious: Yes (Other)
  Sender: FDA-Public Use
  Company Number: US-PURDUE-USA-2012-0092077

PATIENT
  Sex: Female

DRUGS (2)
  1. BUTRANS [Suspect]
     Indication: PRODUCT USED FOR UNKNOWN INDICATION
     Dosage: 10 mcg/hr, UNK
  2. ANTIPSYCHOTICS [Concomitant]

REACTIONS (3)
  - Lower limb fracture [Unknown]
  - Dizziness [Unknown]
  - Fall [Unknown]
